FAERS Safety Report 23513954 (Version 4)
Quarter: 2024Q2

REPORT INFORMATION
  Report Type: Spontaneous
  Country: US (occurrence: US)
  Receive Date: 20240212
  Receipt Date: 20240410
  Transmission Date: 20240716
  Serious: No
  Sender: FDA-Public Use
  Company Number: US-PFIZER INC-202400026455

PATIENT
  Age: 11 Year
  Sex: Male

DRUGS (1)
  1. GENOTROPIN [Suspect]
     Active Substance: SOMATROPIN
     Indication: Growth disorder
     Dosage: JUST DIALS PEN TO 1.3, ONCE A DAY
     Dates: start: 202312

REACTIONS (2)
  - Drug dose omission by device [Unknown]
  - Device breakage [Unknown]
